FAERS Safety Report 20905827 (Version 1)
Quarter: 2022Q2

REPORT INFORMATION
  Report Type: Spontaneous
  Country: US (occurrence: None)
  Receive Date: 20220601
  Receipt Date: 20220601
  Transmission Date: 20220720
  Serious: No
  Sender: FDA-Public Use
  Company Number: None

PATIENT
  Age: 63 Year
  Sex: Female
  Weight: 88.2 kg

DRUGS (9)
  1. PAXLOVID [Suspect]
     Active Substance: NIRMATRELVIR\RITONAVIR
     Indication: COVID-19
     Dosage: OTHER QUANTITY : 3 TABLET(S);?FREQUENCY : TWICE A DAY;?
     Route: 048
     Dates: start: 20220531, end: 20220601
  2. METFORMIN [Concomitant]
     Active Substance: METFORMIN HYDROCHLORIDE
  3. LYRICA [Concomitant]
     Active Substance: PREGABALIN
  4. TRULICITY [Concomitant]
     Active Substance: DULAGLUTIDE
  5. CYCLOBENZAPRINE [Concomitant]
     Active Substance: CYCLOBENZAPRINE
  6. Alive gummy multi-vitamins [Concomitant]
  7. plexus bio-cleanse [Concomitant]
  8. MELATONIN [Concomitant]
     Active Substance: MELATONIN
  9. VITAMIN B12 [Concomitant]
     Active Substance: CYANOCOBALAMIN

REACTIONS (5)
  - Dysgeusia [None]
  - Abdominal discomfort [None]
  - Throat irritation [None]
  - Oesophageal pain [None]
  - Vomiting [None]

NARRATIVE: CASE EVENT DATE: 20220601
